FAERS Safety Report 9103931 (Version 2)
Quarter: 2013Q1

REPORT INFORMATION
  Report Type: Spontaneous
  Country: MX (occurrence: MX)
  Receive Date: 20130219
  Receipt Date: 20130307
  Transmission Date: 20140127
  Serious: Yes (Other)
  Sender: FDA-Public Use
  Company Number: PHHY2013MX015226

PATIENT
  Age: 73 Year
  Sex: Female

DRUGS (6)
  1. ACLASTA [Suspect]
     Indication: OSTEOPOROSIS
     Dosage: 5 MG/100ML YEARLY
     Route: 042
     Dates: start: 20120215, end: 201302
  2. METFORMIN [Concomitant]
     Indication: DIABETES MELLITUS
     Dosage: 2 UKN, UNK
     Route: 065
     Dates: start: 200901
  3. APROVEL [Concomitant]
     Indication: ANGIOPATHY
     Dosage: 2 UKN, UNK
     Route: 065
  4. ANGIOTROFIN [Concomitant]
     Indication: BLOOD PRESSURE ABNORMAL
     Dosage: 2 UKN, UNK
     Route: 065
     Dates: start: 199801
  5. CARTIGEN//GLUCOSAMINE SULFATE [Concomitant]
     Indication: BONE DISORDER
     Dosage: 2 UNK, UNK
     Route: 065
     Dates: start: 201202
  6. AMOXICILLIN [Concomitant]
     Indication: BRONCHITIS
     Dosage: UNK UKN, UNK

REACTIONS (3)
  - Upper limb fracture [Recovered/Resolved]
  - Lower limb fracture [Recovered/Resolved]
  - Bone erosion [Unknown]
